FAERS Safety Report 4408512-1 (Version None)
Quarter: 2004Q3

REPORT INFORMATION
  Report Type: 
  Country: None (occurrence: None)
  Receive Date: 20040726
  Receipt Date: 20040624
  Transmission Date: 20050211
  Serious: Yes (Hospitalization)
  Sender: FDA-Public Use
  Company Number: 2004UW11853

PATIENT
  Age: 74 Year
  Sex: Female

DRUGS (6)
  1. CRESTOR [Suspect]
     Dosage: 10 MG PO
     Route: 048
     Dates: start: 20040301, end: 20040601
  2. ALEVE [Suspect]
  3. DIOVAN HCT [Suspect]
  4. METFORMIN HYDROCHLORIDE/GLYBURIDE [Suspect]
  5. GLUCOPHAGE [Suspect]
  6. TOPROL-XL [Concomitant]

REACTIONS (1)
  - RENAL FAILURE ACUTE [None]
